FAERS Safety Report 10317428 (Version 2)
Quarter: 2014Q4

REPORT INFORMATION
  Report Type: Other
  Country: US (occurrence: US)
  Receive Date: 20140719
  Receipt Date: 20141205
  Transmission Date: 20150528
  Serious: Yes (Hospitalization, Other)
  Sender: FDA-Public Use
  Company Number: US-GSKPPD-2014GSK009035

PATIENT
  Age: 71 Year
  Sex: Male

DRUGS (3)
  1. AVANDIA [Suspect]
     Active Substance: ROSIGLITAZONE MALEATE
     Indication: DIABETES MELLITUS
     Dosage: DATES OF AVANDIA USE COULD NOT BE CONFIRMED IN RECORDS REVIEWED.
     Route: 048
  2. ZAROXOLYN [Concomitant]
     Active Substance: METOLAZONE
     Route: 048
  3. LASIX [Concomitant]
     Active Substance: FUROSEMIDE
     Dosage: 80MG TWICE DAILY
     Route: 048

REACTIONS (4)
  - Multi-organ failure [Recovered/Resolved]
  - Coronary artery disease [Recovered/Resolved]
  - Cardio-respiratory arrest [Recovered/Resolved]
  - Cardiac failure congestive [Recovered/Resolved]

NARRATIVE: CASE EVENT DATE: 20060720
